FAERS Safety Report 4689539-1 (Version None)
Quarter: 2005Q2

REPORT INFORMATION
  Report Type: 
  Country: None (occurrence: None)
  Receive Date: 20050614
  Receipt Date: 20041202
  Transmission Date: 20051028
  Serious: Yes (Other)
  Sender: FDA-Public Use
  Company Number: US-2004-BP-13323BP

PATIENT
  Sex: Female
  Weight: 87.5 kg

DRUGS (6)
  1. MICARDIS [Suspect]
     Indication: HYPERTENSION
     Route: 048
     Dates: start: 20020501, end: 20041202
  2. LOZOL [Concomitant]
     Indication: FLUID RETENTION
     Route: 048
  3. AVANDIA [Concomitant]
     Indication: DIABETES MELLITUS
     Route: 048
  4. PEPCID [Concomitant]
     Indication: DYSPEPSIA
  5. K-DUR 10 [Concomitant]
     Indication: MINERAL SUPPLEMENTATION
  6. ASPIRIN [Concomitant]
     Indication: ANTICOAGULANT THERAPY

REACTIONS (18)
  - ANOREXIA [None]
  - ASTHENIA [None]
  - BALANCE DISORDER [None]
  - BLOOD ARSENIC INCREASED [None]
  - DYSGEUSIA [None]
  - FALL [None]
  - FEELING ABNORMAL [None]
  - FEELING HOT [None]
  - GINGIVAL PAIN [None]
  - GLOSSODYNIA [None]
  - HYPOAESTHESIA ORAL [None]
  - JOINT INJURY [None]
  - NAUSEA [None]
  - NERVOUSNESS [None]
  - OEDEMA MOUTH [None]
  - PHARMACEUTICAL PRODUCT COMPLAINT [None]
  - SWOLLEN TONGUE [None]
  - WEIGHT DECREASED [None]
